FAERS Safety Report 17429277 (Version 1)
Quarter: 2020Q1

REPORT INFORMATION
  Report Type: Spontaneous
  Country: US (occurrence: US)
  Receive Date: 20200218
  Receipt Date: 20200218
  Transmission Date: 20200409
  Serious: No
  Sender: FDA-Public Use
  Company Number: US-HILL DERMACEUTICALS, INC.-2080589

PATIENT
  Sex: Female

DRUGS (1)
  1. DERMA-SMOOTHE/FS [Suspect]
     Active Substance: FLUOCINOLONE ACETONIDE
     Indication: SEBORRHOEIC DERMATITIS
     Route: 061
     Dates: start: 20190729, end: 20190729

REACTIONS (3)
  - Dyspnoea [Recovered/Resolved]
  - Headache [Recovered/Resolved]
  - Nasal congestion [Recovered/Resolved]

NARRATIVE: CASE EVENT DATE: 20190729
